FAERS Safety Report 9168559 (Version 1)
Quarter: 2013Q1

REPORT INFORMATION
  Report Type: Spontaneous
  Country: US (occurrence: US)
  Receive Date: 20130318
  Receipt Date: 20130318
  Transmission Date: 20140127
  Serious: No
  Sender: FDA-Public Use
  Company Number: US-ASTRAZENECA-2013SE14717

PATIENT
  Age: 57 Year
  Sex: Male
  Weight: 73.5 kg

DRUGS (8)
  1. PULMICORT [Suspect]
     Indication: CYSTIC FIBROSIS
     Route: 055
     Dates: start: 201301
  2. PROTONIX [Concomitant]
     Indication: DYSPEPSIA
     Route: 048
  3. ZITHROMYCIN [Concomitant]
     Indication: ANTIBIOTIC PROPHYLAXIS
     Route: 048
  4. ALBUTEROL NEBULIZER [Concomitant]
     Indication: RESPIRATORY DISORDER
     Dosage: BID
     Route: 055
  5. FORADIL [Concomitant]
     Indication: RESPIRATORY DISORDER
     Dosage: BID
     Route: 055
  6. CREON [Concomitant]
     Indication: DYSPEPSIA
     Dosage: 4 TABLETS AC
     Route: 048
  7. PEROXICAM [Concomitant]
     Indication: ANALGESIC INTERVENTION SUPPORTIVE THERAPY
     Dosage: DAILY
     Route: 048
  8. FOSAMAX [Concomitant]
     Indication: OSTEOPOROSIS
     Route: 048

REACTIONS (2)
  - Dyspnoea [Not Recovered/Not Resolved]
  - Off label use [Unknown]
